FAERS Safety Report 7390501-9 (Version None)
Quarter: 2011Q2

REPORT INFORMATION
  Report Type: 
  Country: None (occurrence: None)
  Receive Date: 20110402
  Receipt Date: 20110321
  Transmission Date: 20111010
  Serious: Yes (Other)
  Sender: FDA-Public Use
  Company Number: US-ELI_LILLY_AND_COMPANY-US201007005335

PATIENT
  Sex: Female

DRUGS (6)
  1. ALBUTEROL [Concomitant]
  2. FORTEO [Suspect]
     Indication: OSTEOPOROSIS
     Dosage: 20 UG, DAILY (1/D)
     Route: 058
     Dates: start: 20100623
  3. FORTEO [Suspect]
     Dosage: 20 UG, DAILY (1/D)
     Dates: end: 20110228
  4. FORTEO [Suspect]
     Dosage: 20 UG, DAILY (1/D)
     Route: 065
  5. PROCARDIA [Concomitant]
  6. ADVAIR DISKUS 100/50 [Concomitant]

REACTIONS (10)
  - DRY SKIN [None]
  - NEOPLASM SKIN [None]
  - MUSCULOSKELETAL STIFFNESS [None]
  - PAIN IN EXTREMITY [None]
  - THROAT IRRITATION [None]
  - BONE DENSITY ABNORMAL [None]
  - SQUAMOUS CELL CARCINOMA [None]
  - FATIGUE [None]
  - SCAB [None]
  - HAND FRACTURE [None]
